FAERS Safety Report 10427000 (Version 1)
Quarter: 2014Q3

REPORT INFORMATION
  Report Type: Spontaneous
  Country: US (occurrence: None)
  Receive Date: 20140902
  Receipt Date: 20140902
  Transmission Date: 20150326
  Serious: No
  Sender: FDA-Public Use
  Company Number: None

PATIENT
  Age: 43 Year
  Sex: Male
  Weight: 131.54 kg

DRUGS (1)
  1. SEROQUEL XR [Suspect]
     Active Substance: QUETIAPINE FUMARATE
     Dosage: 300 MG (1 PILL), QHS/BEDTIME, ORAL
     Route: 048
     Dates: start: 20140825, end: 20140826

REACTIONS (2)
  - Sedation [None]
  - Somnolence [None]

NARRATIVE: CASE EVENT DATE: 20140826
